FAERS Safety Report 7245602-2 (Version None)
Quarter: 2011Q1

REPORT INFORMATION
  Report Type: 
  Country: None (occurrence: None)
  Receive Date: 20110126
  Receipt Date: 20110121
  Transmission Date: 20110831
  Serious: Yes (Other)
  Sender: FDA-Public Use
  Company Number: JP-PFIZER INC-2011015921

PATIENT
  Age: 55 Year
  Sex: Female

DRUGS (2)
  1. NORVASC [Suspect]
     Indication: HYPERTENSION
     Dosage: 5 MG DAILY
     Route: 048
     Dates: start: 20100929, end: 20101209
  2. LIPITOR [Suspect]
     Dosage: 5 MG DAILY
     Dates: start: 20100929, end: 20101209

REACTIONS (1)
  - TUMOUR MARKER INCREASED [None]
